FAERS Safety Report 6967348-8 (Version None)
Quarter: 2010Q3

REPORT INFORMATION
  Report Type: 
  Country: None (occurrence: None)
  Receive Date: 20100907
  Receipt Date: 20100826
  Transmission Date: 20110219
  Serious: No
  Sender: FDA-Public Use
  Company Number: US-JNJFOC-20100900125

PATIENT
  Sex: Female
  Weight: 95.26 kg

DRUGS (2)
  1. FENTANYL CITRATE [Suspect]
     Indication: BACK PAIN
     Route: 062
  2. UNKNOWN MEDICATION [Concomitant]
     Indication: MALAISE

REACTIONS (3)
  - PARAESTHESIA [None]
  - PRURITUS GENERALISED [None]
  - TREATMENT NONCOMPLIANCE [None]
